FAERS Safety Report 8473590-X (Version None)
Quarter: 2012Q2

REPORT INFORMATION
  Report Type: 
  Country: None (occurrence: None)
  Receive Date: 20120628
  Receipt Date: 20110804
  Transmission Date: 20120825
  Serious: Yes (Other)
  Sender: FDA-Public Use
  Company Number: US-MYLANLABS-2011S1012961

PATIENT
  Age: 51 Year
  Sex: Female

DRUGS (15)
  1. ACYCLOVIR [Concomitant]
  2. RITUXAN [Suspect]
     Indication: B-CELL LYMPHOMA
     Route: 042
     Dates: start: 20110614, end: 20110705
  3. NEXIUM [Concomitant]
  4. VESICARE [Concomitant]
  5. CLOZAPINE [Suspect]
     Route: 048
     Dates: end: 20110601
  6. ABILIFY [Concomitant]
  7. DESMOPRESSIN ACETATE [Concomitant]
     Dosage: 1 - 2 PER DAY
  8. CLOZAPINE [Suspect]
     Route: 048
     Dates: start: 20110601
  9. CLOZAPINE [Suspect]
     Route: 048
     Dates: start: 20110601
  10. MELOXICAM [Concomitant]
  11. NEUPOGEN [Concomitant]
  12. CYMBALTA [Concomitant]
  13. LEXAPRO [Concomitant]
  14. CLOZAPINE [Suspect]
     Indication: SCHIZOAFFECTIVE DISORDER
     Route: 048
     Dates: end: 20110601
  15. CLORAZEPATE DIPOTASSIUM [Concomitant]

REACTIONS (2)
  - LEUKOPENIA [None]
  - GRANULOCYTOPENIA [None]
